FAERS Safety Report 5993226-7 (Version None)
Quarter: 2008Q4

REPORT INFORMATION
  Report Type: 
  Country: None (occurrence: None)
  Receive Date: 20081212
  Receipt Date: 20081205
  Transmission Date: 20090506
  Serious: Yes (Death)
  Sender: FDA-Public Use
  Company Number: US-JNJFOC-20080606036

PATIENT
  Sex: Female
  Weight: 45.36 kg

DRUGS (15)
  1. DURAGESIC-100 [Suspect]
     Route: 062
  2. DURAGESIC-100 [Suspect]
     Indication: PAIN
     Route: 062
  3. MULTI-VITAMINS [Concomitant]
  4. PREVACID [Concomitant]
     Route: 045
  5. ATIVAN [Concomitant]
  6. REGLAN [Concomitant]
  7. LORATADINE [Concomitant]
  8. TYLENOL W/ CODEINE NO. 3 [Concomitant]
  9. CELEXA [Concomitant]
  10. TUMS [Concomitant]
  11. ACIDOPHYLLUS [Concomitant]
  12. DRAMAMINE [Concomitant]
  13. CEFAZOLIN [Concomitant]
  14. MORPHINE [Concomitant]
  15. ZOFRAN [Concomitant]

REACTIONS (11)
  - ABDOMINAL DISTENSION [None]
  - ACUTE PULMONARY OEDEMA [None]
  - APPLICATION SITE PAIN [None]
  - ASPIRATION [None]
  - BACK PAIN [None]
  - CARDIO-RESPIRATORY ARREST [None]
  - DRUG TOXICITY [None]
  - INFECTION [None]
  - OVERDOSE [None]
  - PAIN IN EXTREMITY [None]
  - UNRESPONSIVE TO STIMULI [None]
